FAERS Safety Report 14877605 (Version 2)
Quarter: 2018Q3

REPORT INFORMATION
  Report Type: Spontaneous
  Country: GB (occurrence: GB)
  Receive Date: 20180510
  Receipt Date: 20180730
  Transmission Date: 20181010
  Serious: Yes (Hospitalization, Other)
  Sender: FDA-Public Use
  Company Number: GB-BAUSCH-BL-2018-013542

PATIENT
  Age: 59 Year
  Sex: Male

DRUGS (37)
  1. TACROLIMUS. [Concomitant]
     Active Substance: TACROLIMUS
     Indication: PROPHYLAXIS
  2. PRED FORTE [Concomitant]
     Active Substance: PREDNISOLONE ACETATE
     Indication: ACANTHAMOEBA KERATITIS
     Route: 065
  3. PRED FORTE [Concomitant]
     Active Substance: PREDNISOLONE ACETATE
     Route: 065
  4. LEVOFLOXACIN. [Concomitant]
     Active Substance: LEVOFLOXACIN
     Dosage: 0.5 PERCENT, (REDUCED TO HOURLY DAYTIME ONLY)
     Route: 065
  5. IMIDAZOLE [Concomitant]
     Active Substance: IMIDAZOLE
     Indication: ACANTHAMOEBA KERATITIS
     Route: 065
  6. DEXAMETHASONE. [Suspect]
     Active Substance: DEXAMETHASONE
     Route: 065
  7. POLYHEXAMETHYLENE BIGUANIDE HYDROCHLORIDE [Concomitant]
     Active Substance: POLIHEXANIDE HYDROCHLORIDE
     Route: 065
  8. VORICONAZOLE. [Concomitant]
     Active Substance: VORICONAZOLE
     Route: 065
  9. VORICONAZOLE. [Concomitant]
     Active Substance: VORICONAZOLE
     Route: 050
  10. POSACONAZOLE [Concomitant]
     Active Substance: POSACONAZOLE
     Route: 048
  11. TACROLIMUS. [Concomitant]
     Active Substance: TACROLIMUS
     Indication: TRANSPLANT FAILURE
     Route: 048
  12. HEXAMIDINE [Concomitant]
     Active Substance: HEXAMIDINE
     Dosage: HOURLY
     Route: 065
  13. PREDNISOLONE. [Concomitant]
     Active Substance: PREDNISOLONE
     Indication: ACANTHAMOEBA KERATITIS
     Route: 065
  14. POLYHEXAMETHYLENE BIGUANIDE HYDROCHLORIDE [Concomitant]
     Active Substance: POLIHEXANIDE HYDROCHLORIDE
     Indication: ACANTHAMOEBA KERATITIS
     Route: 065
  15. POLYHEXAMETHYLENE BIGUANIDE HYDROCHLORIDE [Concomitant]
     Active Substance: POLIHEXANIDE HYDROCHLORIDE
     Dosage: TWO HOURLY DAY ONLY
     Route: 065
  16. POSACONAZOLE [Concomitant]
     Active Substance: POSACONAZOLE
     Indication: ACANTHAMOEBA KERATITIS
     Dosage: 300 MG, BID, LOADING DOSE
     Route: 048
  17. CHLORHEXIDINE [Concomitant]
     Active Substance: CHLORHEXIDINE
     Indication: ACANTHAMOEBA KERATITIS
     Dosage: 2 HOURLY
     Route: 065
  18. HEXAMIDINE [Concomitant]
     Active Substance: HEXAMIDINE
     Indication: ACANTHAMOEBA KERATITIS
     Route: 065
  19. HEXAMIDINE [Concomitant]
     Active Substance: HEXAMIDINE
     Route: 065
  20. LEVOFLOXACIN. [Concomitant]
     Active Substance: LEVOFLOXACIN
     Dosage: TWO HOURLY DAY ONLY
     Route: 065
  21. MILTEFOSINE [Concomitant]
     Active Substance: MILTEFOSINE
     Indication: PROPHYLAXIS
  22. GENTAMICIN. [Concomitant]
     Active Substance: GENTAMICIN
     Indication: ACANTHAMOEBA KERATITIS
     Route: 065
  23. VORICONAZOLE. [Concomitant]
     Active Substance: VORICONAZOLE
     Route: 065
  24. HEXAMIDINE [Concomitant]
     Active Substance: HEXAMIDINE
     Dosage: 006 PERCENT, HOURLY DAY AND NIGHT
     Route: 065
  25. HEXAMIDINE [Concomitant]
     Active Substance: HEXAMIDINE
     Route: 065
  26. VORICONAZOLE. [Concomitant]
     Active Substance: VORICONAZOLE
     Indication: ACANTHAMOEBA KERATITIS
     Route: 065
  27. LEVOFLOXACIN. [Concomitant]
     Active Substance: LEVOFLOXACIN
     Indication: ACANTHAMOEBA KERATITIS
     Dosage: 0.5 PERCENT HOURLY DAY AND NIGHT
     Route: 065
  28. METHYLPREDNISOLONE. [Concomitant]
     Active Substance: METHYLPREDNISOLONE
     Indication: ACANTHAMOEBA KERATITIS
     Route: 042
  29. CHLORHEXIDINE [Concomitant]
     Active Substance: CHLORHEXIDINE
     Route: 065
  30. CEFUROXIME. [Concomitant]
     Active Substance: CEFUROXIME
     Indication: ACANTHAMOEBA KERATITIS
     Route: 065
  31. DEXAMETHASONE. [Suspect]
     Active Substance: DEXAMETHASONE
     Indication: ACANTHAMOEBA KERATITIS
     Route: 065
  32. POLYHEXAMETHYLENE BIGUANIDE HYDROCHLORIDE [Concomitant]
     Active Substance: POLIHEXANIDE HYDROCHLORIDE
     Dosage: HOURLY DAYTIME ONLY
     Route: 065
  33. POLYHEXAMETHYLENE BIGUANIDE HYDROCHLORIDE [Concomitant]
     Active Substance: POLIHEXANIDE HYDROCHLORIDE
     Dosage: HOURLY DAY AND NIGHT
  34. CHLORHEXIDINE [Concomitant]
     Active Substance: CHLORHEXIDINE
     Dosage: DAY AND NIGHT
     Route: 065
  35. CHLORHEXIDINE [Concomitant]
     Active Substance: CHLORHEXIDINE
     Dosage: 0.02 PERCENT, HOURLY DAY AND NIGHT
     Route: 065
  36. MILTEFOSINE [Concomitant]
     Active Substance: MILTEFOSINE
     Indication: ACANTHAMOEBA KERATITIS
     Dosage: 2.5 MG/KG/DAY
     Route: 048
  37. GENTAMICIN. [Concomitant]
     Active Substance: GENTAMICIN
     Dosage: HOURLY DAY AND NIGHT
     Route: 065

REACTIONS (2)
  - Acanthamoeba keratitis [Not Recovered/Not Resolved]
  - Condition aggravated [Not Recovered/Not Resolved]
